FAERS Safety Report 11831109 (Version 1)
Quarter: 2015Q4

REPORT INFORMATION
  Report Type: Spontaneous
  Country: US (occurrence: US)
  Receive Date: 20151214
  Receipt Date: 20151214
  Transmission Date: 20160305
  Serious: No
  Sender: FDA-Public Use
  Company Number: US-BAYER-2015-487860

PATIENT
  Age: 90 Year
  Sex: Female
  Weight: 64.85 kg

DRUGS (2)
  1. ALEVE [Suspect]
     Active Substance: NAPROXEN SODIUM
     Indication: ANALGESIC THERAPY
     Dosage: 4 DF, IN 16 HOURS
     Route: 048
     Dates: start: 20151210, end: 20151210
  2. ALEVE [Suspect]
     Active Substance: NAPROXEN SODIUM
     Indication: ANALGESIC THERAPY
     Dosage: 1 DF, PRN
     Route: 048
     Dates: start: 2005

REACTIONS (2)
  - Product use issue [None]
  - Expired product administered [None]

NARRATIVE: CASE EVENT DATE: 20151210
